FAERS Safety Report 13791475 (Version 2)
Quarter: 2017Q3

REPORT INFORMATION
  Report Type: Report from Study
  Country: CN (occurrence: CN)
  Receive Date: 20170725
  Receipt Date: 20170810
  Transmission Date: 20171127
  Serious: Yes (Hospitalization, Other)
  Sender: FDA-Public Use
  Company Number: CN-BAYER-2017-133534

PATIENT
  Age: 53 Year
  Sex: Male

DRUGS (2)
  1. CAPECITABINE. [Concomitant]
     Active Substance: CAPECITABINE
  2. STIVARGA [Suspect]
     Active Substance: REGORAFENIB
     Indication: COLORECTAL CANCER
     Dosage: 160 MG, QD
     Route: 048
     Dates: start: 20170702

REACTIONS (13)
  - Hepatic failure [None]
  - Palmar-plantar erythrodysaesthesia syndrome [Recovered/Resolved]
  - Dizziness [None]
  - Vomiting [None]
  - Peripheral swelling [Not Recovered/Not Resolved]
  - Fatigue [None]
  - Erythema [Recovered/Resolved]
  - Pain in extremity [None]
  - Skin burning sensation [None]
  - Rash [None]
  - Hospitalisation [None]
  - Adverse reaction [None]
  - Abdominal pain upper [None]

NARRATIVE: CASE EVENT DATE: 201707
